FAERS Safety Report 7554466-9 (Version None)
Quarter: 2011Q2

REPORT INFORMATION
  Report Type: 
  Country: None (occurrence: None)
  Receive Date: 20110617
  Receipt Date: 20110613
  Transmission Date: 20111010
  Serious: Yes (Hospitalization)
  Sender: FDA-Public Use
  Company Number: A0931212A

PATIENT
  Sex: Female
  Weight: 77 kg

DRUGS (10)
  1. ADVAIR DISKUS 100/50 [Suspect]
     Indication: CHRONIC OBSTRUCTIVE PULMONARY DISEASE
     Dosage: 1PUFF TWICE PER DAY
     Route: 055
     Dates: start: 20110101
  2. AGGRENOX [Concomitant]
  3. VITAMIN D [Concomitant]
  4. UNKNOWN STOMACH MEDICATION [Concomitant]
  5. SYNTHROID [Concomitant]
  6. MULTI-VITAMIN [Concomitant]
  7. EFFEXOR [Concomitant]
     Indication: DEPRESSION
  8. ALTACE [Concomitant]
     Indication: BLOOD PRESSURE
  9. ACID REFLUX MED. [Concomitant]
  10. LIPITOR [Concomitant]

REACTIONS (8)
  - DEHYDRATION [None]
  - FALL [None]
  - HYPERHIDROSIS [None]
  - DRY THROAT [None]
  - DYSPHONIA [None]
  - FATIGUE [None]
  - HYPOKINESIA [None]
  - PALLOR [None]
